FAERS Safety Report 5576503-3 (Version None)
Quarter: 2007Q4

REPORT INFORMATION
  Report Type: 
  Country: None (occurrence: None)
  Receive Date: 20071228
  Receipt Date: 20071228
  Transmission Date: 20080405
  Serious: Yes (Other)
  Sender: FDA-Public Use
  Company Number: A0700767A

PATIENT
  Age: 90 Year
  Sex: Female

DRUGS (5)
  1. ADVAIR DISKUS 100/50 [Suspect]
     Indication: WHEEZING
     Dosage: 1PUFF TWICE PER DAY
     Route: 055
     Dates: start: 19980101
  2. ALBUTEROL [Concomitant]
  3. LIPITOR [Concomitant]
  4. FOSAMAX [Concomitant]
  5. TYLENOL [Concomitant]

REACTIONS (1)
  - MACULAR DEGENERATION [None]
